FAERS Safety Report 10797829 (Version 4)
Quarter: 2015Q3

REPORT INFORMATION
  Report Type: Spontaneous
  Country: US (occurrence: US)
  Receive Date: 20150216
  Receipt Date: 20150828
  Transmission Date: 20151125
  Serious: Yes (Life-Threatening, Hospitalization, Disabling, Other)
  Sender: FDA-Public Use
  Company Number: US-009507513-1502USA007050

PATIENT
  Sex: Male
  Weight: 80.73 kg

DRUGS (5)
  1. JANUVIA [Suspect]
     Active Substance: SITAGLIPTIN PHOSPHATE
     Indication: TYPE 2 DIABETES MELLITUS
     Dosage: 50 MG, QD
     Route: 048
     Dates: start: 20120409, end: 20130328
  2. ASPIRIN. [Concomitant]
     Active Substance: ASPIRIN
     Indication: CARDIAC DISORDER
     Dosage: UNK
     Dates: start: 2006
  3. LISINOPRIL. [Concomitant]
     Active Substance: LISINOPRIL
     Indication: HYPERTENSION
     Dosage: UNK
     Dates: start: 2000
  4. LEVITRA [Concomitant]
     Active Substance: VARDENAFIL HYDROCHLORIDE TRIHYDRATE
     Indication: HYPERLIPIDAEMIA
     Dosage: UNK
     Dates: start: 2008
  5. PLAVIX [Concomitant]
     Active Substance: CLOPIDOGREL BISULFATE
     Indication: ANTICOAGULANT THERAPY
     Dosage: UNK
     Dates: start: 2006

REACTIONS (22)
  - Tinea versicolour [Unknown]
  - Constipation [Unknown]
  - Metastases to liver [Unknown]
  - Metastases to bone [Unknown]
  - Renal mass [Unknown]
  - Cancer surgery [Unknown]
  - Metastases to lymph nodes [Unknown]
  - Spinal laminectomy [Unknown]
  - Metastases to abdominal cavity [Unknown]
  - Diverticulum intestinal [Unknown]
  - Prostatomegaly [Unknown]
  - Spinal column stenosis [Unknown]
  - Radiotherapy [Unknown]
  - Emotional disorder [Not Recovered/Not Resolved]
  - Hypoaesthesia [Unknown]
  - Metastases to spine [Unknown]
  - Spinal cord compression [Unknown]
  - Retroperitoneal lymphadenopathy [Unknown]
  - Urinary retention [Unknown]
  - Coronary artery disease [Unknown]
  - Pancreatic carcinoma metastatic [Not Recovered/Not Resolved]
  - Depression [Not Recovered/Not Resolved]

NARRATIVE: CASE EVENT DATE: 201206
